FAERS Safety Report 8148820-4 (Version None)
Quarter: 2012Q1

REPORT INFORMATION
  Report Type: 
  Country: None (occurrence: None)
  Receive Date: 20120218
  Receipt Date: 20110718
  Transmission Date: 20120608
  Serious: No
  Sender: FDA-Public Use
  Company Number: US-ALLERGAN-1109663US

PATIENT
  Age: 30 Year
  Sex: Female

DRUGS (16)
  1. BOTOX COSMETIC [Suspect]
     Dosage: UNK UNITS, SINGLE
     Dates: start: 20101001, end: 20101001
  2. HYDROCHLOROTHIAZIDE [Concomitant]
     Indication: DIURETIC THERAPY
  3. IBUPROFEN (ADVIL) [Concomitant]
     Indication: ANALGESIC THERAPY
  4. CALCIUM [Concomitant]
     Indication: SUPPLEMENTATION THERAPY
  5. BOTOX COSMETIC [Suspect]
     Indication: SKIN WRINKLING
     Dosage: UNK UNITS, SINGLE
     Route: 030
     Dates: start: 20110705, end: 20110705
  6. DYSPORT [Concomitant]
     Indication: PRODUCT USED FOR UNKNOWN INDICATION
     Dosage: UNK
     Dates: start: 20100203, end: 20100203
  7. PHENTERMINE [Concomitant]
     Indication: DECREASED APPETITE
  8. NUVARING [Concomitant]
     Indication: CONTRACEPTION
  9. BOTOX COSMETIC [Suspect]
     Dosage: UNK UNITS, SINGLE
     Dates: start: 20100630, end: 20100630
  10. MULTI-VITAMIN [Concomitant]
     Indication: SUPPLEMENTATION THERAPY
  11. SELENIUM [Concomitant]
     Indication: SUPPLEMENTATION THERAPY
  12. DYSPORT [Concomitant]
     Dosage: UNK
     Dates: start: 20100819, end: 20100819
  13. PRASTERONE [Concomitant]
     Indication: SUPPLEMENTATION THERAPY
  14. BENADRYL [Concomitant]
     Indication: SLEEP DISORDER
  15. IODINE THERAPY [Concomitant]
     Indication: THYROID DISORDER
  16. BOTOX COSMETIC [Suspect]
     Dosage: UNK UNITS, SINGLE
     Dates: start: 20110125, end: 20110125

REACTIONS (10)
  - EYE PRURITUS [None]
  - EYE DISORDER [None]
  - SKIN DISORDER [None]
  - INJECTION SITE SWELLING [None]
  - HYPOAESTHESIA [None]
  - EYE SWELLING [None]
  - TENSION HEADACHE [None]
  - DRUG INEFFECTIVE [None]
  - TENSION [None]
  - OCULAR HYPERAEMIA [None]
